FAERS Safety Report 8093565-2 (Version None)
Quarter: 2012Q1

REPORT INFORMATION
  Report Type: 
  Country: None (occurrence: None)
  Receive Date: 20120129
  Receipt Date: 20111025
  Transmission Date: 20120608
  Serious: Yes (Other)
  Sender: FDA-Public Use
  Company Number: US-ABBOTT-11P-163-0868325-00

PATIENT
  Sex: Female
  Weight: 70.37 kg

DRUGS (14)
  1. LOSARTAN POTASSIUM [Concomitant]
     Indication: HYPERTENSION
  2. LOVASTATIN [Concomitant]
     Indication: BLOOD CHOLESTEROL INCREASED
  3. ALIGN [Concomitant]
     Indication: GASTRIC DISORDER
  4. AMLODIPINE [Concomitant]
     Indication: HYPERTENSION
  5. TEMAZEPAM [Concomitant]
     Indication: SLEEP DISORDER
  6. SALMON OIL [Concomitant]
     Indication: SUPPLEMENTATION THERAPY
  7. VICODIN [Concomitant]
     Indication: PAIN
  8. HUMIRA [Suspect]
     Indication: RHEUMATOID ARTHRITIS
     Dates: start: 20111018
  9. LUMIGAN EYE DROPS [Concomitant]
     Indication: GLAUCOMA
  10. TOPROL-XL [Concomitant]
     Indication: HYPERTENSION
  11. OMEPRAZOLE [Concomitant]
     Indication: GASTROOESOPHAGEAL REFLUX DISEASE
  12. ASCORBIC ACID [Concomitant]
     Indication: VITAMIN SUPPLEMENTATION
  13. ARTIFICAL TEARS [Concomitant]
     Indication: PRODUCT USED FOR UNKNOWN INDICATION
  14. CALCIUM WITH VITAMIN D [Concomitant]
     Indication: MINERAL SUPPLEMENTATION

REACTIONS (4)
  - PAIN [None]
  - CHEST PAIN [None]
  - NAUSEA [None]
  - HEADACHE [None]
